FAERS Safety Report 5134650-4 (Version None)
Quarter: 2006Q4

REPORT INFORMATION
  Report Type: 
  Country: None (occurrence: None)
  Receive Date: 20061025
  Receipt Date: 20061019
  Transmission Date: 20070319
  Serious: Yes (Hospitalization)
  Sender: FDA-Public Use
  Company Number: FR-GLAXOSMITHKLINE-B0442860A

PATIENT
  Age: 1 Day
  Sex: Female

DRUGS (3)
  1. DEROXAT [Suspect]
     Dates: start: 20060104, end: 20060926
  2. SPASFON [Concomitant]
  3. IRON [Concomitant]

REACTIONS (3)
  - DRUG EXPOSURE DURING PREGNANCY [None]
  - HYPOTONIA NEONATAL [None]
  - SOMNOLENCE NEONATAL [None]
